FAERS Safety Report 14356525 (Version 1)
Quarter: 2018Q1

REPORT INFORMATION
  Report Type: Report from Study
  Country: DE (occurrence: DE)
  Receive Date: 20180105
  Receipt Date: 20180105
  Transmission Date: 20180509
  Serious: Yes (Other)
  Sender: FDA-Public Use
  Company Number: DE-ASTRAZENECA-2018SE00893

PATIENT

DRUGS (10)
  1. TICAGRELOR. [Suspect]
     Active Substance: TICAGRELOR
     Indication: CARDIOVASCULAR DISORDER
     Route: 048
     Dates: start: 20170319, end: 20170922
  2. PLACEBO [Suspect]
     Active Substance: UNSPECIFIED INGREDIENT
     Indication: CARDIOVASCULAR DISORDER
     Route: 048
     Dates: start: 20170319, end: 20170605
  3. ASA [Suspect]
     Active Substance: ASPIRIN
     Indication: PERCUTANEOUS CORONARY INTERVENTION
     Route: 048
     Dates: start: 20170319, end: 20170605
  4. ASA [Suspect]
     Active Substance: ASPIRIN
     Indication: CARDIOVASCULAR DISORDER
     Route: 048
     Dates: start: 20170606, end: 20170922
  5. ASA [Suspect]
     Active Substance: ASPIRIN
     Indication: CARDIOVASCULAR DISORDER
     Route: 048
     Dates: start: 20170319, end: 20170605
  6. PLACEBO [Suspect]
     Active Substance: UNSPECIFIED INGREDIENT
     Indication: PERCUTANEOUS CORONARY INTERVENTION
     Route: 048
     Dates: start: 20170606, end: 20170922
  7. PLACEBO [Suspect]
     Active Substance: UNSPECIFIED INGREDIENT
     Indication: PERCUTANEOUS CORONARY INTERVENTION
     Route: 048
     Dates: start: 20170319, end: 20170605
  8. PLACEBO [Suspect]
     Active Substance: UNSPECIFIED INGREDIENT
     Indication: CARDIOVASCULAR DISORDER
     Route: 048
     Dates: start: 20170606, end: 20170922
  9. ASA [Suspect]
     Active Substance: ASPIRIN
     Indication: PERCUTANEOUS CORONARY INTERVENTION
     Route: 048
     Dates: start: 20170606, end: 20170922
  10. TICAGRELOR. [Suspect]
     Active Substance: TICAGRELOR
     Indication: PERCUTANEOUS CORONARY INTERVENTION
     Route: 048
     Dates: start: 20170319, end: 20170922

REACTIONS (1)
  - Cardiac ventricular thrombosis [Recovered/Resolved]

NARRATIVE: CASE EVENT DATE: 20170922
